FAERS Safety Report 9806950 (Version 2)
Quarter: 2014Q1

REPORT INFORMATION
  Report Type: Spontaneous
  Country: JP (occurrence: JP)
  Receive Date: 20140109
  Receipt Date: 20140129
  Transmission Date: 20141002
  Serious: Yes (Hospitalization)
  Sender: FDA-Public Use
  Company Number: JP-ROCHE-1330764

PATIENT
  Age: 48 Year
  Sex: Male

DRUGS (6)
  1. ACTEMRA [Suspect]
     Indication: CASTLEMAN^S DISEASE
     Route: 041
     Dates: start: 20131113, end: 20131225
  2. TAKEPRON [Concomitant]
     Indication: PROPHYLAXIS
     Route: 048
     Dates: start: 20080905
  3. FOSAMAX [Concomitant]
     Indication: PROPHYLAXIS
     Route: 048
     Dates: start: 20080919
  4. PREDNISOLONE [Concomitant]
     Indication: CASTLEMAN^S DISEASE
     Dosage: 15MG-30MG
     Route: 048
     Dates: start: 20080905
  5. VOLTAREN [Concomitant]
     Indication: PAIN
     Dosage: DOSAGE IS UNCERTAIN.
     Route: 054
     Dates: start: 20131127
  6. LOXONIN [Concomitant]
     Route: 048
     Dates: start: 20131127

REACTIONS (3)
  - Diverticulum intestinal haemorrhagic [Recovered/Resolved]
  - Blood alkaline phosphatase increased [Not Recovered/Not Resolved]
  - Hepatic function abnormal [Not Recovered/Not Resolved]
